FAERS Safety Report 8219487-1 (Version None)
Quarter: 2012Q1

REPORT INFORMATION
  Report Type: 
  Country: None (occurrence: None)
  Receive Date: 20120319
  Receipt Date: 20120316
  Transmission Date: 20120608
  Serious: Yes (Other)
  Sender: FDA-Public Use
  Company Number: US-PFIZER INC-2012070152

PATIENT
  Sex: Female
  Weight: 94.3 kg

DRUGS (2)
  1. LYRICA [Suspect]
     Indication: FIBROMYALGIA
     Dosage: 50 MG, 2X/DAY
     Route: 048
     Dates: start: 20120314
  2. TRAZODONE [Concomitant]
     Dosage: UNK

REACTIONS (2)
  - HYPOTENSION [None]
  - DIZZINESS [None]
